FAERS Safety Report 6747176-9 (Version None)
Quarter: 2010Q2

REPORT INFORMATION
  Report Type: 
  Country: None (occurrence: None)
  Receive Date: 20100528
  Receipt Date: 20100518
  Transmission Date: 20101027
  Serious: Yes (Hospitalization)
  Sender: FDA-Public Use
  Company Number: JP-JNJFOC-20081206651

PATIENT
  Age: 57 Year
  Sex: Female

DRUGS (13)
  1. REMICADE [Suspect]
     Indication: CROHN'S DISEASE
     Dosage: 2 INFUSIONS ON UNKNOWN DATES
     Route: 042
  2. REMICADE [Suspect]
     Route: 042
  3. FLAGYL [Concomitant]
     Indication: CROHN'S DISEASE
     Route: 048
  4. CRAVIT [Concomitant]
     Indication: CROHN'S DISEASE
     Route: 048
  5. EPADEL S [Concomitant]
     Indication: CROHN'S DISEASE
     Route: 048
  6. BIOFERMIN [Concomitant]
     Indication: CROHN'S DISEASE
     Route: 048
  7. GLAKAY [Concomitant]
     Indication: CROHN'S DISEASE
     Route: 048
  8. LAC-B [Concomitant]
     Indication: CROHN'S DISEASE
     Route: 048
  9. CINAL [Concomitant]
     Indication: CROHN'S DISEASE
     Route: 048
  10. SLOW-K [Concomitant]
     Indication: CROHN'S DISEASE
     Route: 048
  11. LEUKERIN [Concomitant]
     Indication: CROHN'S DISEASE
     Route: 048
  12. PENTASA [Concomitant]
     Indication: CROHN'S DISEASE
     Route: 048
  13. ELENTAL [Concomitant]
     Indication: CROHN'S DISEASE
     Route: 048

REACTIONS (3)
  - BLOOD PRESSURE DECREASED [None]
  - INFUSION RELATED REACTION [None]
  - OROPHARYNGEAL DISCOMFORT [None]
